FAERS Safety Report 4453451-3 (Version None)
Quarter: 2004Q3

REPORT INFORMATION
  Report Type: 
  Country: None (occurrence: None)
  Receive Date: 20040920
  Receipt Date: 20040906
  Transmission Date: 20050211
  Serious: No
  Sender: FDA-Public Use
  Company Number: JP-JNJFOC-20040605699

PATIENT
  Sex: Male

DRUGS (9)
  1. FENTANYL [Suspect]
     Route: 062
  2. FENTANYL [Suspect]
     Indication: CANCER PAIN
     Route: 062
  3. SODIUM PICOSULFATE [Concomitant]
     Indication: CONSTIPATION
     Route: 049
  4. TEGAFUR [Concomitant]
     Route: 049
  5. MORPHINE HYDROCHLORIDE [Concomitant]
     Route: 054
  6. MORPHINE HYDROCHLORIDE [Concomitant]
     Route: 054
  7. MORPHINE HYDROCHLORIDE [Concomitant]
     Route: 054
  8. MORPHINE HYDROCHLORIDE [Concomitant]
     Route: 054
  9. MORPHINE HYDROCHLORIDE [Concomitant]
     Indication: CANCER PAIN
     Route: 054

REACTIONS (2)
  - ANAEMIA [None]
  - BLOOD ALKALINE PHOSPHATASE INCREASED [None]
